FAERS Safety Report 5103037-2 (Version None)
Quarter: 2006Q3

REPORT INFORMATION
  Report Type: 
  Country: None (occurrence: None)
  Receive Date: 20060908
  Receipt Date: 20060823
  Transmission Date: 20061208
  Serious: Yes (Hospitalization)
  Sender: FDA-Public Use
  Company Number: 112285ISR

PATIENT
  Age: 59 Year
  Sex: Male

DRUGS (3)
  1. METOPROLOL [Suspect]
     Indication: ATRIAL FIBRILLATION
     Dosage: 100 MILLIGRAM INTRAVENOUS (NOS)
     Route: 042
  2. DIGITOXIN [Suspect]
     Indication: ATRIAL FIBRILLATION
     Dosage: 0.4 MILLIGRAM INTRAVENOUS (NOS)
     Route: 042
  3. AMIODARONE HCL [Suspect]
     Dosage: INTRAVENOUS (NOS)
     Route: 042

REACTIONS (3)
  - IMPLANTABLE DEFIBRILLATOR MALFUNCTION [None]
  - THERAPY NON-RESPONDER [None]
  - TORSADE DE POINTES [None]
